FAERS Safety Report 4833225-1 (Version None)
Quarter: 2005Q4

REPORT INFORMATION
  Report Type: 
  Country: None (occurrence: None)
  Receive Date: 20051117
  Receipt Date: 20051108
  Transmission Date: 20060501
  Serious: Yes (Disabling, Other)
  Sender: FDA-Public Use
  Company Number: EWC040840398

PATIENT
  Age: 31 Year
  Sex: Male
  Weight: 77 kg

DRUGS (1)
  1. ZYPREXA [Suspect]
     Indication: DELUSION
     Dosage: 10 MG/1 DAY
     Dates: start: 20040807, end: 20040807

REACTIONS (3)
  - DYSURIA [None]
  - ERECTILE DYSFUNCTION [None]
  - PRIAPISM [None]
